FAERS Safety Report 9265234 (Version 1)
Quarter: 2013Q2

REPORT INFORMATION
  Report Type: Report from Study
  Country: SE (occurrence: SE)
  Receive Date: 20130501
  Receipt Date: 20130501
  Transmission Date: 20140414
  Serious: Yes (Hospitalization)
  Sender: FDA-Public Use
  Company Number: SE-BRISTOL-MYERS SQUIBB COMPANY-13375662

PATIENT
  Age: 65 Year
  Sex: Female

DRUGS (4)
  1. DASATINIB [Suspect]
     Indication: CHRONIC MYELOID LEUKAEMIA
     Route: 048
     Dates: start: 20060221
  2. PREDNISOLONE [Concomitant]
  3. FUROSEMIDE [Concomitant]
     Dates: start: 20050825
  4. BENDROFLUMETHIAZIDE [Concomitant]
     Dates: start: 2002

REACTIONS (1)
  - Oedema peripheral [Not Recovered/Not Resolved]
